FAERS Safety Report 7183524-6 (Version None)
Quarter: 2010Q4

REPORT INFORMATION
  Report Type: 
  Country: None (occurrence: None)
  Receive Date: 20101222
  Receipt Date: 20101216
  Transmission Date: 20110411
  Serious: Yes (Death, Hospitalization)
  Sender: FDA-Public Use
  Company Number: PHHY2010FR86069

PATIENT
  Sex: Male

DRUGS (3)
  1. LOXEN [Suspect]
     Dosage: 20 MG, BID
     Route: 048
  2. NISISCO [Suspect]
     Dosage: 1 DF, QD
     Route: 048
  3. ROPINIROLE HYDROCHLORIDE [Suspect]
     Dosage: 2 MG, BID
     Dates: start: 20101102

REACTIONS (10)
  - AMNESIA [None]
  - CARDIO-RESPIRATORY ARREST [None]
  - CONFUSIONAL STATE [None]
  - ELECTROCARDIOGRAM REPOLARISATION ABNORMALITY [None]
  - ELECTROENCEPHALOGRAM ABNORMAL [None]
  - HAEMOGLOBIN DECREASED [None]
  - HYPOTENSION [None]
  - MALAISE [None]
  - SUDDEN DEATH [None]
  - SYNCOPE [None]
